FAERS Safety Report 6628057-8 (Version None)
Quarter: 2010Q1

REPORT INFORMATION
  Report Type: 
  Country: None (occurrence: None)
  Receive Date: 20100311
  Receipt Date: 20090813
  Transmission Date: 20100710
  Serious: No
  Sender: FDA-Public Use
  Company Number: A0802025A

PATIENT
  Age: 47 Year
  Sex: Female

DRUGS (1)
  1. NICORETTE [Suspect]
     Dates: start: 20090811, end: 20090811

REACTIONS (3)
  - DIZZINESS [None]
  - OROPHARYNGEAL PAIN [None]
  - THERMAL BURN [None]
